FAERS Safety Report 23493556 (Version 2)
Quarter: 2024Q1

REPORT INFORMATION
  Report Type: Spontaneous
  Country: TN (occurrence: TN)
  Receive Date: 20240207
  Receipt Date: 20240215
  Transmission Date: 20240409
  Serious: Yes (Other)
  Sender: FDA-Public Use
  Company Number: TN-SUN PHARMACEUTICAL INDUSTRIES LTD-2024RR-430355

PATIENT
  Age: 23 Year
  Sex: Female

DRUGS (2)
  1. OXALIPLATIN [Suspect]
     Active Substance: OXALIPLATIN
     Indication: Adenocarcinoma of appendix
     Dosage: IV OVER 2 HOURS ON DAY 1 AND DAY 15
     Route: 040
     Dates: start: 201811
  2. CAPECITABINE [Concomitant]
     Active Substance: CAPECITABINE
     Indication: Adenocarcinoma of appendix
     Dosage: UNK
     Route: 065
     Dates: start: 201811

REACTIONS (2)
  - Neurotoxicity [Unknown]
  - Myelitis transverse [Unknown]
